FAERS Safety Report 15717964 (Version 1)
Quarter: 2018Q4

REPORT INFORMATION
  Report Type: Spontaneous
  Country: US (occurrence: US)
  Receive Date: 20181213
  Receipt Date: 20181213
  Transmission Date: 20190205
  Serious: No
  Sender: FDA-Public Use
  Company Number: US-SA-2018SA337146

PATIENT
  Age: 10 Year
  Sex: Female
  Weight: 28.12 kg

DRUGS (11)
  1. CEREZYME [Suspect]
     Active Substance: IMIGLUCERASE
     Indication: FABRY^S DISEASE
     Dosage: 200, QW
     Route: 041
     Dates: start: 20180604
  2. ADVAIR HFA [Concomitant]
     Active Substance: FLUTICASONE PROPIONATE\SALMETEROL XINAFOATE
     Dosage: 2 PUFF
     Route: 055
     Dates: start: 20180604
  3. NORMAL SALINE [Concomitant]
     Active Substance: SODIUM CHLORIDE
     Dosage: 0.9 %
     Route: 042
     Dates: start: 20180925
  4. EPINEPHRINE. [Concomitant]
     Active Substance: EPINEPHRINE
     Dosage: 0.15 MG, PRN
     Route: 030
     Dates: start: 20180925
  5. PROAIR [FLUTICASONE PROPIONATE] [Concomitant]
     Dosage: 4 PUFF, QD
     Route: 055
     Dates: start: 20180604
  6. STERILE WATER [Concomitant]
     Active Substance: WATER
     Dosage: 0.9 %
     Route: 042
     Dates: start: 20180925
  7. AZITHROMYCIN ANHYDROUS. [Concomitant]
     Active Substance: AZITHROMYCIN ANHYDROUS
     Dosage: UNK
     Route: 048
     Dates: start: 20180604
  8. SODIUM CHLORIDE. [Concomitant]
     Active Substance: SODIUM CHLORIDE
     Indication: FLUSHING
     Dosage: 0.9 %
     Route: 042
     Dates: start: 20180925
  9. ZYRTEC [Concomitant]
     Active Substance: CETIRIZINE HYDROCHLORIDE
     Dosage: 1 CAP, QD
     Route: 048
     Dates: start: 20180604
  10. HEPARIN [Concomitant]
     Active Substance: HEPARIN SODIUM
     Indication: FLUSHING
     Dosage: 100 UNK
     Route: 042
     Dates: start: 20180925
  11. LMX [LIDOCAINE] [Concomitant]
     Indication: PREMEDICATION
     Dosage: 4 %
     Route: 061
     Dates: start: 20180925

REACTIONS (2)
  - Pharyngitis streptococcal [Unknown]
  - Pyrexia [Unknown]

NARRATIVE: CASE EVENT DATE: 20181118
